FAERS Safety Report 15229978 (Version 3)
Quarter: 2019Q1

REPORT INFORMATION
  Report Type: Spontaneous
  Country: US (occurrence: US)
  Receive Date: 20180802
  Receipt Date: 20190124
  Transmission Date: 20190417
  Serious: No
  Sender: FDA-Public Use
  Company Number: US-JNJFOC-20180721862

PATIENT
  Age: 61 Year
  Sex: Female
  Weight: 54.43 kg

DRUGS (5)
  1. JUVEDERM [Concomitant]
     Active Substance: HYALURONIC ACID
     Indication: HYPOVOLAEMIA
     Route: 065
     Dates: start: 20180711
  2. LEXAPRO [Concomitant]
     Active Substance: ESCITALOPRAM OXALATE
     Indication: DEPRESSION
     Route: 065
  3. ZYRTEC [Concomitant]
     Active Substance: CETIRIZINE HYDROCHLORIDE
     Route: 065
  4. KETOCONAZOLE. [Suspect]
     Active Substance: KETOCONAZOLE
     Indication: SEBORRHOEIC DERMATITIS
     Route: 061
     Dates: start: 20180711, end: 20180719
  5. BOTOX [Concomitant]
     Active Substance: ONABOTULINUMTOXINA
     Route: 065
     Dates: start: 20180711

REACTIONS (3)
  - Dyspnoea [Recovered/Resolved]
  - Somnolence [Recovered/Resolved]
  - Fatigue [Recovered/Resolved]

NARRATIVE: CASE EVENT DATE: 20180719
